FAERS Safety Report 6684244-4 (Version None)
Quarter: 2010Q2

REPORT INFORMATION
  Report Type: 
  Country: None (occurrence: None)
  Receive Date: 20100416
  Receipt Date: 20100406
  Transmission Date: 20101027
  Serious: Yes (Hospitalization)
  Sender: FDA-Public Use
  Company Number: US-AMGEN-US211910

PATIENT
  Age: 39 Year
  Sex: Female
  Weight: 64 kg

DRUGS (7)
  1. ETANERCEPT [Suspect]
     Indication: RHEUMATOID ARTHRITIS
     Dates: start: 20061101
  2. METHOTREXATE [Suspect]
  3. HYDROXYCHLOROQUINE SULFATE [Suspect]
  4. SULFASALAZINE [Suspect]
  5. FOLIC ACID [Concomitant]
  6. PREDNISONE [Concomitant]
  7. ACETAMINOPHEN AND HYDROCODONE BITARTRATE [Concomitant]

REACTIONS (1)
  - PSYCHOTIC DISORDER [None]
